FAERS Safety Report 21239406 (Version 1)
Quarter: 2022Q3

REPORT INFORMATION
  Report Type: Spontaneous
  Country: IN (occurrence: IN)
  Receive Date: 20220822
  Receipt Date: 20220822
  Transmission Date: 20221026
  Serious: Yes (Death, Other)
  Sender: FDA-Public Use
  Company Number: IN-PFIZER INC-2021094042

PATIENT
  Age: 70 Year
  Sex: Female
  Weight: 65 kg

DRUGS (9)
  1. PALBOCICLIB [Suspect]
     Active Substance: PALBOCICLIB
     Indication: Breast cancer metastatic
     Dosage: 125 MG, 1X/DAY
     Route: 048
     Dates: start: 20200915
  2. PALBOCICLIB [Suspect]
     Active Substance: PALBOCICLIB
     Dosage: 100 MG, ONCE A DAY, 3 WEEKS ON AND 1 WEEK OFF
     Dates: start: 20201109
  3. LETROZOLE [Concomitant]
     Active Substance: LETROZOLE
     Dosage: 2.5 MG, 1X/DAY (2.5 MG ONCE DAILY)
     Dates: start: 202009
  4. ZOLEDRONIC ACID [Concomitant]
     Active Substance: ZOLEDRONIC ACID
     Dosage: 4 MG (4 MG IV DAY 1 EVERY 4 WEEKS)
     Dates: start: 202009
  5. TELMISARTAN [Concomitant]
     Active Substance: TELMISARTAN
     Dosage: 20 MG, 1X/DAY (20 MG ONE TAB ONCE DAILY)
  6. ETERNEX M [Concomitant]
     Dosage: UNK, 1X/DAY ((20/1000) ONCE DAILY)
  7. METFORMIN\TENELIGLIPTIN [Concomitant]
     Active Substance: METFORMIN\TENELIGLIPTIN
     Dosage: UNK
  8. ASPIRIN\ATORVASTATIN [Concomitant]
     Active Substance: ASPIRIN\ATORVASTATIN
     Dosage: 1 DF (75/10 ONE CAPSULE AT BED TIME)
  9. AMLODIPINE BESYLATE [Concomitant]
     Active Substance: AMLODIPINE BESYLATE
     Dosage: 2.5 MG, 1X/DAY

REACTIONS (9)
  - Death [Fatal]
  - Neutropenia [Unknown]
  - Neoplasm progression [Unknown]
  - Blood pressure abnormal [Unknown]
  - White blood cell count decreased [Unknown]
  - Abdominal discomfort [Unknown]
  - Abdominal pain [Unknown]
  - Alopecia [Unknown]
  - Dry skin [Unknown]

NARRATIVE: CASE EVENT DATE: 20210112
